FAERS Safety Report 10129690 (Version 1)
Quarter: 2014Q2

REPORT INFORMATION
  Report Type: Spontaneous
  Country: UA (occurrence: UA)
  Receive Date: 20140428
  Receipt Date: 20140428
  Transmission Date: 20141212
  Serious: Yes (Life-Threatening)
  Sender: FDA-Public Use
  Company Number: UA-JNJFOC-20140407314

PATIENT
  Sex: Female

DRUGS (4)
  1. REMICADE [Suspect]
     Indication: CROHN^S DISEASE
     Route: 042
     Dates: start: 201404
  2. REMICADE [Suspect]
     Indication: CROHN^S DISEASE
     Dosage: 3 VIALS
     Route: 042
     Dates: start: 201403, end: 201403
  3. DEXAMETHASONE [Concomitant]
     Route: 065
  4. METHYLPREDNISOLONUM [Concomitant]
     Route: 065

REACTIONS (2)
  - Angioedema [Recovered/Resolved with Sequelae]
  - Rash [Recovered/Resolved]
